FAERS Safety Report 4804430-5 (Version None)
Quarter: 2005Q4

REPORT INFORMATION
  Report Type: 
  Country: None (occurrence: None)
  Receive Date: 20051020
  Receipt Date: 20050803
  Transmission Date: 20060501
  Serious: Yes (Hospitalization, Other)
  Sender: FDA-Public Use
  Company Number: BE-GLAXOSMITHKLINE-B0391010A

PATIENT
  Age: 51 Year
  Sex: Male
  Weight: 110 kg

DRUGS (3)
  1. CEFUROXIME AXETIL [Suspect]
     Indication: BRONCHITIS
     Dosage: 500MG THREE TIMES PER DAY
     Route: 048
     Dates: start: 20050511, end: 20050513
  2. DEPAKENE [Concomitant]
     Indication: EPILEPSY
     Dosage: 800MG PER DAY
     Route: 048
  3. LAMICTAL [Concomitant]
     Indication: EPILEPSY
     Dosage: 50MG PER DAY
     Route: 048

REACTIONS (2)
  - SKIN REACTION [None]
  - VASCULITIS [None]
